FAERS Safety Report 22528104 (Version 1)
Quarter: 2023Q2

REPORT INFORMATION
  Report Type: Report from Study
  Country: US (occurrence: US)
  Receive Date: 20230607
  Receipt Date: 20230607
  Transmission Date: 20230721
  Serious: Yes (Hospitalization, Other)
  Sender: FDA-Public Use
  Company Number: US-ABBVIE-5277830

PATIENT
  Sex: Male

DRUGS (1)
  1. HUMIRA [Suspect]
     Active Substance: ADALIMUMAB
     Indication: Colitis ulcerative
     Dosage: FORM STRENGTH 40 MG?CITRATE FREE
     Route: 058
     Dates: start: 20221105

REACTIONS (3)
  - Cardiac disorder [Recovering/Resolving]
  - Loss of consciousness [Recovering/Resolving]
  - Cardiac dysfunction [Recovering/Resolving]
